FAERS Safety Report 23789303 (Version 2)
Quarter: 2024Q2

REPORT INFORMATION
  Report Type: Spontaneous
  Country: US (occurrence: US)
  Receive Date: 20240426
  Receipt Date: 20240510
  Transmission Date: 20240716
  Serious: Yes (Hospitalization, Other)
  Sender: FDA-Public Use
  Company Number: US-PFIZER INC-202400063861

PATIENT
  Age: 72 Year
  Sex: Female
  Weight: 70.295 kg

DRUGS (2)
  1. XELJANZ XR [Suspect]
     Active Substance: TOFACITINIB CITRATE
     Indication: CREST syndrome
     Dosage: 11 MG, 1X/DAY
     Dates: end: 20240204
  2. XELJANZ XR [Suspect]
     Active Substance: TOFACITINIB CITRATE
     Indication: Mixed connective tissue disease
     Dosage: 11 MG, 1X/DAY
     Dates: start: 20240424

REACTIONS (9)
  - Atrial fibrillation [Recovering/Resolving]
  - Renal disorder [Recovering/Resolving]
  - Sepsis [Recovering/Resolving]
  - Inflammation [Recovering/Resolving]
  - Synovial cyst [Recovering/Resolving]
  - Arthralgia [Recovering/Resolving]
  - Off label use [Unknown]
  - Illness [Unknown]
  - Pain [Recovering/Resolving]

NARRATIVE: CASE EVENT DATE: 20240401
